FAERS Safety Report 9098801 (Version 1)
Quarter: 2013Q1

REPORT INFORMATION
  Report Type: Spontaneous
  Country: JP (occurrence: JP)
  Receive Date: 20130213
  Receipt Date: 20130213
  Transmission Date: 20140127
  Serious: Yes (Other)
  Sender: FDA-Public Use
  Company Number: JP-BRISTOL-MYERS SQUIBB COMPANY-17370305

PATIENT
  Age: 23 Year
  Sex: Female

DRUGS (1)
  1. ABILIFY TABS [Suspect]
     Route: 048
     Dates: start: 201103, end: 201103

REACTIONS (4)
  - Fall [Unknown]
  - Cerebral haemorrhage [Unknown]
  - Dizziness [Unknown]
  - Convulsion [Unknown]
